FAERS Safety Report 11037528 (Version 1)
Quarter: 2015Q2

REPORT INFORMATION
  Report Type: Spontaneous
  Country: US (occurrence: None)
  Receive Date: 20150415
  Receipt Date: 20150415
  Transmission Date: 20150821
  Serious: No
  Sender: FDA-Public Use
  Company Number: None

PATIENT
  Age: 77 Year
  Sex: Female

DRUGS (1)
  1. STIVARGA [Suspect]
     Active Substance: REGORAFENIB
     Indication: COLON CANCER
     Dosage: 4 TABS DAILY
     Route: 048
     Dates: start: 20140918

REACTIONS (2)
  - Abdominal tenderness [None]
  - Anal haemorrhage [None]

NARRATIVE: CASE EVENT DATE: 20150413
